FAERS Safety Report 23026674 (Version 3)
Quarter: 2023Q4

REPORT INFORMATION
  Report Type: Report from Study
  Country: JP (occurrence: JP)
  Receive Date: 20231004
  Receipt Date: 20231121
  Transmission Date: 20240110
  Serious: Yes (Hospitalization)
  Sender: FDA-Public Use
  Company Number: JP-INSMED, INC.-2023-03733-JP

PATIENT
  Age: 78 Year
  Sex: Female

DRUGS (1)
  1. ARIKAYCE [Suspect]
     Active Substance: AMIKACIN
     Indication: Product used for unknown indication
     Dosage: UNK
     Route: 055
     Dates: start: 20220811, end: 2023

REACTIONS (14)
  - Hospitalisation [Unknown]
  - Sputum decreased [Unknown]
  - Nasal dryness [Unknown]
  - Ear disorder [Unknown]
  - Physical deconditioning [Unknown]
  - Bedridden [Unknown]
  - Sputum retention [Unknown]
  - Dry mouth [Unknown]
  - Productive cough [Unknown]
  - Cough [Unknown]
  - Haemoptysis [Unknown]
  - Therapy interrupted [Unknown]
  - Liquid product physical issue [Unknown]
  - Device alarm issue [Unknown]

NARRATIVE: CASE EVENT DATE: 20230101
